FAERS Safety Report 9929455 (Version 1)
Quarter: 2014Q1

REPORT INFORMATION
  Report Type: Spontaneous
  Country: US (occurrence: US)
  Receive Date: 20140227
  Receipt Date: 20140227
  Transmission Date: 20141002
  Serious: Yes (Other)
  Sender: FDA-Public Use
  Company Number: ALCN2014US001176

PATIENT
  Sex: Male

DRUGS (1)
  1. SYSTANE BALANCE RESTORATIVE FORMULA [Suspect]
     Route: 047

REACTIONS (1)
  - Visual acuity reduced [Unknown]
